FAERS Safety Report 8237182-X (Version None)
Quarter: 2012Q1

REPORT INFORMATION
  Report Type: 
  Country: None (occurrence: None)
  Receive Date: 20120327
  Receipt Date: 20120315
  Transmission Date: 20120608
  Serious: Yes (Death)
  Sender: FDA-Public Use
  Company Number: US-BAXTER-2012BH007681

PATIENT
  Sex: Male

DRUGS (7)
  1. DIANEAL [Suspect]
     Route: 033
  2. DIANEAL [Suspect]
  3. EXTRANEAL [Suspect]
     Route: 033
  4. DIANEAL [Suspect]
     Indication: PERITONEAL DIALYSIS
     Route: 033
  5. DIANEAL [Suspect]
  6. EXTRANEAL [Suspect]
     Indication: PERITONEAL DIALYSIS
     Route: 033
  7. EXTRANEAL [Suspect]
     Route: 033

REACTIONS (1)
  - DEATH [None]
